FAERS Safety Report 16565426 (Version 1)
Quarter: 2019Q3

REPORT INFORMATION
  Report Type: Spontaneous
  Country: ES (occurrence: ES)
  Receive Date: 20190712
  Receipt Date: 20190712
  Transmission Date: 20191004
  Serious: Yes (Hospitalization, Other)
  Sender: FDA-Public Use
  Company Number: ES-MYLANLABS-2019M1063338

PATIENT
  Age: 56 Year
  Sex: Female

DRUGS (5)
  1. OLANZAPINE. [Suspect]
     Active Substance: OLANZAPINE
     Dosage: 5 MILLIGRAM, QD
     Route: 065
  2. OLANZAPINE. [Suspect]
     Active Substance: OLANZAPINE
     Dosage: DOSE DOUBLED FOLLOWING CONTINUED CLINICAL WORSENING OF THE PATIENT
     Route: 065
  3. PALIPERIDONE. [Suspect]
     Active Substance: PALIPERIDONE
     Indication: SCHIZOPHRENIA
     Dosage: 3-9 MG/DAY FOR THREE YEARS
     Route: 065
  4. OLANZAPINE. [Suspect]
     Active Substance: OLANZAPINE
     Indication: SCHIZOPHRENIA
     Dosage: FOR THE FIRST YEARS, LATER DECREASED TO 5MG
     Route: 065
  5. PALIPERIDONE. [Suspect]
     Active Substance: PALIPERIDONE
     Dosage: AT THE TIME OF ADMISSION TO ICU
     Route: 065

REACTIONS (14)
  - Gait inability [Recovering/Resolving]
  - Haematuria [Recovering/Resolving]
  - Seizure [Recovering/Resolving]
  - Bacteriuria [Recovering/Resolving]
  - Cardiomegaly [Recovering/Resolving]
  - Withdrawal syndrome [Recovering/Resolving]
  - Metabolic acidosis [Recovering/Resolving]
  - Speech disorder [Recovering/Resolving]
  - Bradyphrenia [Recovering/Resolving]
  - Pyuria [Recovering/Resolving]
  - Encephalopathy [Recovering/Resolving]
  - Neuroleptic malignant syndrome [Recovering/Resolving]
  - Acute kidney injury [Recovering/Resolving]
  - Rhabdomyolysis [Recovering/Resolving]
